FAERS Safety Report 6894413-6 (Version None)
Quarter: 2010Q3

REPORT INFORMATION
  Report Type: 
  Country: None (occurrence: None)
  Receive Date: 20100802
  Receipt Date: 20100721
  Transmission Date: 20110219
  Serious: Yes (Other)
  Sender: FDA-Public Use
  Company Number: US-WYE-H16364810

PATIENT
  Sex: Female
  Weight: 77.18 kg

DRUGS (4)
  1. EFFEXOR XR [Suspect]
     Indication: MAJOR DEPRESSION
     Dates: start: 20090201, end: 20090101
  2. EFFEXOR XR [Suspect]
     Indication: ANXIETY
     Dosage: WEANED OFF
     Dates: start: 20090101, end: 20090101
  3. METOPROLOL TARTRATE [Concomitant]
  4. LISINOPRIL [Concomitant]

REACTIONS (9)
  - AGGRESSION [None]
  - CRYING [None]
  - HEAD BANGING [None]
  - HOSTILITY [None]
  - IMPULSIVE BEHAVIOUR [None]
  - PARANOIA [None]
  - PSYCHOTIC DISORDER [None]
  - SEROTONIN SYNDROME [None]
  - SOMNAMBULISM [None]
